FAERS Safety Report 24640333 (Version 1)
Quarter: 2024Q4

REPORT INFORMATION
  Report Type: Spontaneous
  Country: US (occurrence: US)
  Receive Date: 20241120
  Receipt Date: 20241120
  Transmission Date: 20250114
  Serious: Yes (Other)
  Sender: AMGEN
  Company Number: US-AMGEN-USASP2024226561

PATIENT
  Age: 44 Year
  Sex: Female

DRUGS (13)
  1. RITUXIMAB [Suspect]
     Active Substance: RITUXIMAB
     Indication: Follicular lymphoma stage IV
     Dosage: UNK
     Route: 065
  2. PREDNISONE [Suspect]
     Active Substance: PREDNISONE
     Indication: Follicular lymphoma stage IV
     Dosage: UNK
     Route: 065
  3. BEVACIZUMAB [Suspect]
     Active Substance: BEVACIZUMAB
     Indication: Radiation necrosis
     Dosage: UNK, (FOUR CYCLES)
     Route: 065
  4. ETOPOSIDE [Concomitant]
     Active Substance: ETOPOSIDE
     Indication: Follicular lymphoma stage IV
     Dosage: UNK
  5. VINCRISTINE [Concomitant]
     Active Substance: VINCRISTINE
     Indication: Follicular lymphoma stage IV
     Dosage: UNK
  6. CYCLOPHOSPHAMIDE [Concomitant]
     Active Substance: CYCLOPHOSPHAMIDE
     Indication: Follicular lymphoma
     Dosage: UNK
  7. DOXORUBICIN [Concomitant]
     Active Substance: DOXORUBICIN
     Indication: Follicular lymphoma stage IV
     Dosage: UNK
  8. METHOTREXATE [Concomitant]
     Active Substance: METHOTREXATE
     Indication: Follicular lymphoma stage IV
     Dosage: UNK
  9. BENDAMUSTINE [Concomitant]
     Active Substance: BENDAMUSTINE
     Indication: Follicular lymphoma stage IV
     Dosage: UNK
  10. IFOSFAMIDE [Concomitant]
     Active Substance: IFOSFAMIDE
     Indication: Follicular lymphoma stage IV
     Dosage: UNK
  11. CYTARABINE [Concomitant]
     Active Substance: CYTARABINE
     Indication: Follicular lymphoma stage IV
     Dosage: UNK, HIGH DOSE
     Route: 065
  12. FLUDARABINE [Concomitant]
     Active Substance: FLUDARABINE PHOSPHATE
     Indication: Follicular lymphoma stage IV
     Dosage: UNK
     Route: 065
  13. TISAGENLECLEUCEL [Concomitant]
     Active Substance: TISAGENLECLEUCEL
     Indication: Follicular lymphoma stage IV
     Dosage: UNK
     Route: 065

REACTIONS (6)
  - High-grade B-cell lymphoma [Unknown]
  - Cytokine release syndrome [Unknown]
  - Radiation necrosis [Recovering/Resolving]
  - Therapy non-responder [Unknown]
  - Drug effective for unapproved indication [Unknown]
  - Off label use [Unknown]
